FAERS Safety Report 21916503 (Version 4)
Quarter: 2024Q3

REPORT INFORMATION
  Report Type: Spontaneous
  Country: JP (occurrence: JP)
  Receive Date: 20230126
  Receipt Date: 20240808
  Transmission Date: 20241017
  Serious: Yes (Hospitalization, Disabling, Other)
  Sender: MERCK
  Company Number: JP-MSD-M2023-01862

PATIENT
  Age: 62 Year
  Sex: Female

DRUGS (6)
  1. KEYTRUDA [Suspect]
     Active Substance: PEMBROLIZUMAB
     Indication: Triple negative breast cancer
     Dosage: 200 MILLIGRAM, Q3W
     Route: 041
     Dates: start: 20221116, end: 202212
  2. KEYTRUDA [Suspect]
     Active Substance: PEMBROLIZUMAB
     Indication: PD-L1 positive cancer
     Dosage: UNK
     Route: 041
     Dates: start: 202212, end: 20221228
  3. PACLITAXEL [Suspect]
     Active Substance: PACLITAXEL
     Indication: Triple negative breast cancer
     Dosage: UNK
     Route: 041
     Dates: start: 20221116
  4. PACLITAXEL [Suspect]
     Active Substance: PACLITAXEL
     Indication: PD-L1 positive cancer
  5. CARBOPLATIN [Concomitant]
     Active Substance: CARBOPLATIN
     Indication: Triple negative breast cancer
     Dosage: UNK
     Route: 041
     Dates: start: 20221116, end: 20221228
  6. CARBOPLATIN [Concomitant]
     Active Substance: CARBOPLATIN
     Indication: PD-L1 positive cancer

REACTIONS (5)
  - Cerebral infarction [Unknown]
  - Decreased activity [Not Recovered/Not Resolved]
  - Immune-mediated adrenal insufficiency [Recovered/Resolved]
  - Dehydration [Unknown]
  - Neuropathy peripheral [Not Recovered/Not Resolved]

NARRATIVE: CASE EVENT DATE: 20221207
